FAERS Safety Report 7063165-1 (Version None)
Quarter: 2010Q4

REPORT INFORMATION
  Report Type: 
  Country: None (occurrence: None)
  Receive Date: 20101026
  Receipt Date: 20100513
  Transmission Date: 20110411
  Serious: No
  Sender: FDA-Public Use
  Company Number: US-PFIZER INC-2010061388

PATIENT
  Age: 73 Year
  Sex: Female

DRUGS (4)
  1. LIPITOR [Suspect]
     Indication: BLOOD CHOLESTEROL INCREASED
     Dosage: 80 MG, UNK
  2. NORVASC [Concomitant]
     Dosage: UNK
  3. ARICEPT [Concomitant]
     Dosage: UNK
  4. ACTOS [Concomitant]

REACTIONS (1)
  - DYSPHAGIA [None]
